FAERS Safety Report 10271628 (Version 2)
Quarter: 2014Q3

REPORT INFORMATION
  Report Type: Report from Study
  Country: CA (occurrence: CA)
  Receive Date: 20140701
  Receipt Date: 20140701
  Transmission Date: 20150326
  Serious: Yes (Hospitalization, Other)
  Sender: FDA-Public Use
  Company Number: CA-ABBVIE-13P-028-1124010-00

PATIENT
  Age: 57 Year
  Sex: Female

DRUGS (1)
  1. HUMIRA [Suspect]
     Active Substance: ADALIMUMAB
     Indication: PSORIATIC ARTHROPATHY
     Route: 058
     Dates: start: 20070221

REACTIONS (12)
  - Amnesia [Unknown]
  - Brain injury [Not Recovered/Not Resolved]
  - Fall [Recovered/Resolved]
  - Road traffic accident [Unknown]
  - Fall [Unknown]
  - Contusion [Recovering/Resolving]
  - Abdominal pain upper [Unknown]
  - Head injury [Unknown]
  - Bile duct stone [Unknown]
  - Fall [Unknown]
  - Wheelchair user [Unknown]
  - Skull fracture [Not Recovered/Not Resolved]

NARRATIVE: CASE EVENT DATE: 20130719
